FAERS Safety Report 8346233-3 (Version None)
Quarter: 2012Q2

REPORT INFORMATION
  Report Type: 
  Country: None (occurrence: None)
  Receive Date: 20120509
  Receipt Date: 20120501
  Transmission Date: 20120825
  Serious: Yes (Other)
  Sender: FDA-Public Use
  Company Number: US-US-EMD SERONO, INC.-7129916

PATIENT
  Sex: Female

DRUGS (2)
  1. REBIF [Suspect]
     Indication: MULTIPLE SCLEROSIS
     Dates: start: 20090101, end: 20100101
  2. REBIF [Suspect]
     Route: 058
     Dates: start: 20110501

REACTIONS (3)
  - FEELING ABNORMAL [None]
  - BREAST CANCER [None]
  - INFLUENZA LIKE ILLNESS [None]
